APPROVED DRUG PRODUCT: POTASSIUM CITRATE
Active Ingredient: POTASSIUM CITRATE
Strength: 10MEQ/PACKET **Federal Register determination that product was not discontinued or withdrawn for safety or effectiveness reasons**
Dosage Form/Route: FOR SOLUTION;ORAL
Application: N019647 | Product #002
Applicant: UT SOUTHWESTERN MEDCTR
Approved: Oct 13, 1988 | RLD: Yes | RS: No | Type: DISCN